FAERS Safety Report 16484575 (Version 2)
Quarter: 2019Q3

REPORT INFORMATION
  Report Type: Spontaneous
  Country: US (occurrence: US)
  Receive Date: 20190627
  Receipt Date: 20190729
  Transmission Date: 20191004
  Serious: No
  Sender: FDA-Public Use
  Company Number: US-ASTRAZENECA-2019SE80887

PATIENT
  Age: 29302 Day
  Sex: Male
  Weight: 56.7 kg

DRUGS (1)
  1. SYMBICORT [Suspect]
     Active Substance: BUDESONIDE\FORMOTEROL FUMARATE DIHYDRATE
     Indication: CHRONIC OBSTRUCTIVE PULMONARY DISEASE
     Dosage: SYMBICORT 160/4.5 MCG, TWO PUFFS TWICE A DAY
     Route: 055
     Dates: start: 201902

REACTIONS (4)
  - Intentional product misuse [Unknown]
  - Device failure [Unknown]
  - Hypoacusis [Unknown]
  - Device malfunction [Unknown]

NARRATIVE: CASE EVENT DATE: 20190528
